FAERS Safety Report 4825694-8 (Version None)
Quarter: 2005Q4

REPORT INFORMATION
  Report Type: 
  Country: None (occurrence: None)
  Receive Date: 20051109
  Receipt Date: 20051031
  Transmission Date: 20060501
  Serious: Yes (Hospitalization, Other)
  Sender: FDA-Public Use
  Company Number: 2005150579

PATIENT
  Age: 84 Year
  Sex: Female
  Weight: 76.2043 kg

DRUGS (6)
  1. LYRICA [Suspect]
     Indication: SPINAL OSTEOARTHRITIS
     Dosage: 300 MG (100 MG, 3 IN 1 D), ORAL
     Route: 048
     Dates: start: 20051026, end: 20051028
  2. ETODOLAC [Concomitant]
  3. MICARDIS [Concomitant]
  4. PAROXETINE HCL [Concomitant]
  5. ZOCOR [Concomitant]
  6. BISOPROLOL (BISOPROLOL) [Concomitant]

REACTIONS (6)
  - DYSKINESIA [None]
  - HALLUCINATION [None]
  - MUSCLE TWITCHING [None]
  - PCO2 INCREASED [None]
  - PO2 DECREASED [None]
  - WHEEZING [None]
